FAERS Safety Report 7261079-5 (Version None)
Quarter: 2011Q1

REPORT INFORMATION
  Report Type: 
  Country: None (occurrence: None)
  Receive Date: 20110130
  Receipt Date: 20101229
  Transmission Date: 20110831
  Serious: No
  Sender: FDA-Public Use
  Company Number: US-ABBOTT-10P-163-0694239-00

PATIENT
  Sex: Female
  Weight: 59.02 kg

DRUGS (8)
  1. LEXAPRO [Concomitant]
     Indication: DEPRESSION
  2. KLONOPIN [Concomitant]
     Indication: CONVULSION
  3. PREMARIN [Concomitant]
     Indication: HORMONE REPLACEMENT THERAPY
  4. SINGULAIR [Concomitant]
     Indication: HYPERSENSITIVITY
  5. NEXIUM [Concomitant]
     Indication: PRODUCT USED FOR UNKNOWN INDICATION
  6. HUMIRA [Suspect]
     Indication: RHEUMATOID ARTHRITIS
     Dates: start: 20101001
  7. KEPPRA [Concomitant]
     Indication: CONVULSION
  8. AMBIEN [Concomitant]
     Indication: SLEEP DISORDER
     Dosage: QHS

REACTIONS (7)
  - GASTROOESOPHAGEAL REFLUX DISEASE [None]
  - DRUG DOSE OMISSION [None]
  - DEVICE MALFUNCTION [None]
  - INSOMNIA [None]
  - ARTHRITIS [None]
  - ARTHRALGIA [None]
  - JOINT SWELLING [None]
